FAERS Safety Report 12686863 (Version 2)
Quarter: 2016Q3

REPORT INFORMATION
  Report Type: Spontaneous
  Country: US (occurrence: US)
  Receive Date: 20160825
  Receipt Date: 20160912
  Transmission Date: 20161109
  Serious: No
  Sender: FDA-Public Use
  Company Number: US-JAZZ-2016-US-006886

PATIENT
  Sex: Female

DRUGS (35)
  1. XYREM [Suspect]
     Active Substance: SODIUM OXYBATE
     Indication: NARCOLEPSY
     Dosage: 2.25 G, BID
     Route: 048
     Dates: start: 201102, end: 2011
  2. AMPHETAMINE SALTS [Concomitant]
     Active Substance: AMPHETAMINE ASPARTATE\AMPHETAMINE SULFATE\DEXTROAMPHETAMINE SACCHARATE\DEXTROAMPHETAMINE SULFATE
  3. DICYCLOMINE [Concomitant]
     Active Substance: DICYCLOMINE HYDROCHLORIDE
  4. ADDERALL [Concomitant]
     Active Substance: AMPHETAMINE ASPARTATE\AMPHETAMINE SULFATE\DEXTROAMPHETAMINE SACCHARATE\DEXTROAMPHETAMINE SULFATE
  5. FLONASE [Concomitant]
     Active Substance: FLUTICASONE PROPIONATE
  6. IMITREX [Concomitant]
     Active Substance: SUMATRIPTAN SUCCINATE
  7. PROVIGIL [Concomitant]
     Active Substance: MODAFINIL
  8. WELLBUTRIN [Concomitant]
     Active Substance: BUPROPION HYDROCHLORIDE
  9. ZENATANE [Concomitant]
     Active Substance: ISOTRETINOIN
  10. ALBUTEROL SULFATE. [Concomitant]
     Active Substance: ALBUTEROL SULFATE
  11. BUPROPION HCL [Concomitant]
     Active Substance: BUPROPION HYDROCHLORIDE
  12. PRILOSEC [Concomitant]
     Active Substance: OMEPRAZOLE MAGNESIUM
  13. RIBOFLAVIN [Concomitant]
     Active Substance: RIBOFLAVIN
  14. ZYRTEC [Concomitant]
     Active Substance: CETIRIZINE HYDROCHLORIDE
  15. CALCIUM +D [Concomitant]
     Active Substance: CALCIUM\VITAMIN D
  16. XYREM [Suspect]
     Active Substance: SODIUM OXYBATE
     Indication: CATAPLEXY
     Dosage: DOSE ADJUSTMENTS
     Route: 048
  17. LEXAPRO [Concomitant]
     Active Substance: ESCITALOPRAM OXALATE
  18. METHOCARBAMOL. [Concomitant]
     Active Substance: METHOCARBAMOL
  19. OMEPRAZOLE. [Concomitant]
     Active Substance: OMEPRAZOLE
  20. TRAMADOL HCL [Concomitant]
     Active Substance: TRAMADOL HYDROCHLORIDE
  21. DULOXETINE HCL [Concomitant]
     Active Substance: DULOXETINE HYDROCHLORIDE
  22. XYREM [Suspect]
     Active Substance: SODIUM OXYBATE
     Dosage: 2.5 G, BID
     Route: 048
     Dates: start: 201509
  23. NUVIGIL [Concomitant]
     Active Substance: ARMODAFINIL
  24. VITAMIN B COMPLEX [Concomitant]
     Active Substance: CYANOCOBALAMIN\DEXPANTHENOL\NIACINAMIDE\PYRIDOXINE HYDROCHLORIDE\RIBOFLAVIN 5^-PHOSPHATE SODIUM\THIAMINE HYDROCHLORIDE\VITAMIN B COMPLEX
  25. JUNEL FE 1/20 [Concomitant]
     Active Substance: ETHINYL ESTRADIOL\NORETHINDRONE ACETATE
  26. MIRALAX [Concomitant]
     Active Substance: POLYETHYLENE GLYCOL 3350
  27. PREDNISONE. [Concomitant]
     Active Substance: PREDNISONE
  28. PROBIOTIC [Concomitant]
     Active Substance: PROBIOTICS NOS
  29. VALIUM [Concomitant]
     Active Substance: DIAZEPAM
  30. EPINEPHRINE. [Concomitant]
     Active Substance: EPINEPHRINE
  31. FLAXSEED [Concomitant]
     Active Substance: FLAX SEED
  32. METHYLPHENIDATE. [Concomitant]
     Active Substance: METHYLPHENIDATE
  33. TOPAMAX [Concomitant]
     Active Substance: TOPIRAMATE
  34. YAZ [Concomitant]
     Active Substance: DROSPIRENONE\ETHINYL ESTRADIOL
  35. AMNESTEEM [Concomitant]
     Active Substance: ISOTRETINOIN

REACTIONS (1)
  - Muscle spasms [Unknown]
